FAERS Safety Report 8217995-0 (Version None)
Quarter: 2012Q1

REPORT INFORMATION
  Report Type: 
  Country: None (occurrence: None)
  Receive Date: 20120319
  Receipt Date: 20120316
  Transmission Date: 20120608
  Serious: Yes (Other)
  Sender: FDA-Public Use
  Company Number: US-PFIZER INC-2012070071

PATIENT
  Sex: Female
  Weight: 78.005 kg

DRUGS (4)
  1. CYMBALTA [Concomitant]
     Indication: NEURALGIA
     Dosage: UNK, 1X/DAY
  2. CHANTIX [Suspect]
     Dosage: UNK
     Route: 048
     Dates: start: 20120301, end: 20120311
  3. CYMBALTA [Concomitant]
     Indication: INTERVERTEBRAL DISC PROTRUSION
  4. CHANTIX [Suspect]
     Indication: SMOKING CESSATION THERAPY
     Dosage: 0.5 MG, 1X/DAY
     Route: 048
     Dates: start: 20120304, end: 20120301

REACTIONS (6)
  - ILL-DEFINED DISORDER [None]
  - MANIA [None]
  - IMPAIRED WORK ABILITY [None]
  - SUICIDAL IDEATION [None]
  - THINKING ABNORMAL [None]
  - PERSONALITY CHANGE [None]
